FAERS Safety Report 4527195-3 (Version None)
Quarter: 2004Q4

REPORT INFORMATION
  Report Type: 
  Country: None (occurrence: None)
  Receive Date: 20041213
  Receipt Date: 20041122
  Transmission Date: 20050328
  Serious: Yes (Death)
  Sender: FDA-Public Use
  Company Number: A-CH2004-07487

PATIENT
  Age: 9 Month
  Sex: Male
  Weight: 5.2 kg

DRUGS (6)
  1. TRACLEER [Suspect]
     Indication: PULMONARY HYPERTENSION
     Dosage: 16 MG,BID,ORAL
     Route: 048
     Dates: start: 20040810, end: 20040916
  2. DIGITALIS CAP [Concomitant]
  3. SPIRONOLACTONE [Concomitant]
  4. FUROSEMIDE [Concomitant]
  5. BERAPROST (BERAPROST) [Concomitant]
  6. SILDENAFIL (SILDENAFIL) [Concomitant]

REACTIONS (3)
  - CARDIAC FAILURE [None]
  - CONDITION AGGRAVATED [None]
  - PULMONARY HYPERTENSION [None]
